FAERS Safety Report 15982449 (Version 2)
Quarter: 2020Q1

REPORT INFORMATION
  Report Type: Spontaneous
  Country: US (occurrence: US)
  Receive Date: 20190219
  Receipt Date: 20200318
  Transmission Date: 20200409
  Serious: No
  Sender: FDA-Public Use
  Company Number: US-ENDO PHARMACEUTICALS INC-2019-100027

PATIENT
  Age: 58 Year
  Sex: Male
  Weight: 79.37 kg

DRUGS (1)
  1. XIAFLEX [Suspect]
     Active Substance: COLLAGENASE CLOSTRIDIUM HISTOLYTICUM
     Indication: DUPUYTREN^S CONTRACTURE
     Dosage: 0.58 MG, SINGLE
     Route: 058
     Dates: start: 20181218, end: 20181218

REACTIONS (2)
  - Drug ineffective [Not Recovered/Not Resolved]
  - Dupuytren^s contracture [Not Recovered/Not Resolved]

NARRATIVE: CASE EVENT DATE: 20181218
